FAERS Safety Report 9689321 (Version 2)
Quarter: 2013Q4

REPORT INFORMATION
  Report Type: Report from Study
  Country: PR (occurrence: PR)
  Receive Date: 20131114
  Receipt Date: 20131114
  Transmission Date: 20140711
  Serious: Yes (Other)
  Sender: FDA-Public Use
  Company Number: PR-ABBVIE-13P-131-1135676-00

PATIENT
  Sex: Female
  Weight: 89.89 kg

DRUGS (9)
  1. HUMIRA [Suspect]
     Indication: RHEUMATOID ARTHRITIS
     Route: 058
     Dates: start: 2011, end: 201307
  2. ALBUTEROL [Concomitant]
     Indication: ASTHMA
     Route: 048
  3. ADVAIR [Concomitant]
     Indication: ASTHMA
     Route: 058
  4. CYMBALTA [Concomitant]
     Indication: FIBROMYALGIA
     Route: 048
  5. AMBIEN [Concomitant]
     Indication: FIBROMYALGIA
     Route: 048
  6. TAMADOL [Concomitant]
     Indication: RHEUMATOID ARTHRITIS
  7. NEURONTIN [Concomitant]
     Indication: RHEUMATOID ARTHRITIS
  8. FOLIC ACID [Concomitant]
     Indication: RHEUMATOID ARTHRITIS
     Route: 048
  9. BACLOFEN [Concomitant]
     Indication: RHEUMATOID ARTHRITIS
     Route: 048

REACTIONS (5)
  - Pulmonary mass [Not Recovered/Not Resolved]
  - Atelectasis [Not Recovered/Not Resolved]
  - Inflammation [Not Recovered/Not Resolved]
  - Chest pain [Unknown]
  - Asphyxia [Unknown]
